FAERS Safety Report 8306430-X (Version None)
Quarter: 2012Q2

REPORT INFORMATION
  Report Type: 
  Country: None (occurrence: None)
  Receive Date: 20120423
  Receipt Date: 20120417
  Transmission Date: 20120825
  Serious: Yes (Hospitalization)
  Sender: FDA-Public Use
  Company Number: US-MYLANLABS-2012S1008006

PATIENT
  Age: 58 Year
  Sex: Female
  Weight: 88.45 kg

DRUGS (6)
  1. LEXAPRO [Concomitant]
     Indication: DEPRESSION
     Dosage: USING LEXAPRO, 20MG
  2. ULTRAM [Concomitant]
     Indication: ARTHRITIS
  3. TRIAMTERENE AND HYDROCHLOROTHIAZIDE [Suspect]
     Route: 048
     Dates: start: 20100406, end: 20100408
  4. SYNTHROID [Concomitant]
     Indication: HYPOTHYROIDISM
  5. NEURONTIN [Concomitant]
     Indication: NEURALGIA
  6. PRILOSEC [Concomitant]
     Indication: GASTROOESOPHAGEAL REFLUX DISEASE

REACTIONS (3)
  - FLUSHING [None]
  - TRANSIENT ISCHAEMIC ATTACK [None]
  - DIZZINESS [None]
